FAERS Safety Report 7503657-1 (Version None)
Quarter: 2011Q2

REPORT INFORMATION
  Report Type: 
  Country: None (occurrence: None)
  Receive Date: 20110518
  Receipt Date: 20110506
  Transmission Date: 20111010
  Serious: Yes (Other)
  Sender: FDA-Public Use
  Company Number: JP-2011-10742

PATIENT
  Age: 73 Year
  Sex: Female

DRUGS (2)
  1. SAMSCA [Suspect]
     Indication: CARDIAC SARCOIDOSIS
     Dosage: 15 MG MILLIGRAM(S), 7.5 MG MILLIIGRAMS DAILY DOSE, ORAL
     Route: 048
     Dates: start: 20110428, end: 20110428
  2. SAMSCA [Suspect]
     Indication: CARDIAC SARCOIDOSIS
     Dosage: 15 MG MILLIGRAM(S), 7.5 MG MILLIIGRAMS DAILY DOSE, ORAL
     Route: 048
     Dates: start: 20110429, end: 20110430

REACTIONS (1)
  - HEPATIC FUNCTION ABNORMAL [None]
